FAERS Safety Report 15754995 (Version 2)
Quarter: 2019Q1

REPORT INFORMATION
  Report Type: Spontaneous
  Country: CZ (occurrence: CZ)
  Receive Date: 20181224
  Receipt Date: 20190118
  Transmission Date: 20190417
  Serious: Yes (Death, Other)
  Sender: FDA-Public Use
  Company Number: CZ-RECORDATI RARE DISEASES INC.-CZ-R13005-18-00310

PATIENT
  Age: 5 Year
  Sex: Male
  Weight: 18.3 kg

DRUGS (5)
  1. VINCRISTINE [Suspect]
     Active Substance: VINCRISTINE
     Indication: PLEUROPULMONARY BLASTOMA
     Route: 065
  2. DOXORUBICIN HYDROCHLORIDE. [Suspect]
     Active Substance: DOXORUBICIN HYDROCHLORIDE
     Indication: PLEUROPULMONARY BLASTOMA
     Route: 042
  3. CACTINOMYCIN [Suspect]
     Active Substance: CACTINOMYCIN
     Indication: PLEUROPULMONARY BLASTOMA
     Route: 065
  4. DACTINOMYCIN [Suspect]
     Active Substance: DACTINOMYCIN
     Indication: PLEUROPULMONARY BLASTOMA
     Route: 065
  5. IFOSFAMIDE. [Suspect]
     Active Substance: IFOSFAMIDE
     Indication: PLEUROPULMONARY BLASTOMA
     Route: 065

REACTIONS (6)
  - Disease progression [Fatal]
  - Dental caries [Fatal]
  - Off label use [Unknown]
  - Pleuropulmonary blastoma [Fatal]
  - Cachexia [Fatal]
  - Infection [Fatal]
